FAERS Safety Report 9132903 (Version 1)
Quarter: 2013Q1

REPORT INFORMATION
  Report Type: Spontaneous
  Country: BR (occurrence: BR)
  Receive Date: 20130301
  Receipt Date: 20130301
  Transmission Date: 20140127
  Serious: Yes (Other)
  Sender: FDA-Public Use
  Company Number: CHNY2013BR000714

PATIENT
  Sex: Female

DRUGS (1)
  1. OTRIVINA [Suspect]
     Indication: RHINITIS ALLERGIC
     Dosage: UNK, UNK

REACTIONS (5)
  - Deafness unilateral [Unknown]
  - Ear pain [Unknown]
  - Neuralgia [Unknown]
  - Migraine [Unknown]
  - Lacrimation increased [Unknown]
